FAERS Safety Report 5946452-7 (Version None)
Quarter: 2008Q4

REPORT INFORMATION
  Report Type: 
  Country: None (occurrence: None)
  Receive Date: 20081110
  Receipt Date: 20081029
  Transmission Date: 20090506
  Serious: Yes (Other)
  Sender: FDA-Public Use
  Company Number: US-BAYER-200814235BCC

PATIENT
  Age: 47 Year
  Sex: Male
  Weight: 82 kg

DRUGS (1)
  1. ALEVE (CAPLET) [Suspect]
     Indication: TOOTHACHE
     Dosage: TOTAL DAILY DOSE: 440 MG  UNIT DOSE: 220 MG
     Route: 048
     Dates: start: 20081026

REACTIONS (6)
  - DYSPNOEA [None]
  - HEART RATE IRREGULAR [None]
  - HOT FLUSH [None]
  - HYPERSENSITIVITY [None]
  - LOSS OF CONSCIOUSNESS [None]
  - PRURITUS GENERALISED [None]
